FAERS Safety Report 14995327 (Version 1)
Quarter: 2018Q2

REPORT INFORMATION
  Report Type: Spontaneous
  Country: US (occurrence: US)
  Receive Date: 20180611
  Receipt Date: 20180611
  Transmission Date: 20180711
  Serious: Yes (Other)
  Sender: FDA-Public Use
  Company Number: US-SA-2017SA268106

PATIENT
  Age: 35 Year
  Sex: Female
  Weight: 45.35 kg

DRUGS (5)
  1. TAXOTERE [Suspect]
     Active Substance: DOCETAXEL
     Indication: BREAST CANCER FEMALE
     Dosage: 105 MG/140 MG,Q3W
     Route: 051
     Dates: start: 20061218, end: 20061218
  2. ADRIAMYCIN [DOXORUBICIN] [Concomitant]
  3. TAXOTERE [Suspect]
     Active Substance: DOCETAXEL
     Dosage: 105 MG/140 MG,Q3W
     Route: 051
     Dates: start: 20070219, end: 20070219
  4. CYTOXAN [Concomitant]
     Active Substance: CYCLOPHOSPHAMIDE
  5. NEOSAR [Concomitant]
     Active Substance: CYCLOPHOSPHAMIDE
     Indication: BREAST CANCER

REACTIONS (2)
  - Psychological trauma [Unknown]
  - Alopecia [Recovering/Resolving]

NARRATIVE: CASE EVENT DATE: 20061218
